FAERS Safety Report 9221860 (Version 3)
Quarter: 2013Q2

REPORT INFORMATION
  Report Type: Spontaneous
  Country: US (occurrence: None)
  Receive Date: 20130408
  Receipt Date: 20130528
  Transmission Date: 20140414
  Serious: Yes (Death)
  Sender: FDA-Public Use
  Company Number: AMAG201300055

PATIENT
  Age: 75 Year
  Sex: Male
  Weight: 75.7 kg

DRUGS (18)
  1. FERAHEME (FERUMOXYTOL) INJECTION, 510MG [Suspect]
     Indication: IRON DEFICIENCY ANAEMIA
     Dosage: 1 ML (30 MG), SINGLE, IV PUSH
     Route: 042
     Dates: start: 20130401, end: 20130401
  2. FERAHEME (FERUMOXYTOL) INJECTION, 510MG [Suspect]
     Indication: RENAL FAILURE CHRONIC
     Dosage: 1 ML (30 MG), SINGLE, IV PUSH
     Route: 042
     Dates: start: 20130401, end: 20130401
  3. CLONIDINE (CLONIDINE HYDROCHLORIDE) [Concomitant]
  4. DOXAZOSIN (DOXAZOSIN MESILATE) [Concomitant]
  5. EDECRIN (ETACRYNIC ACID) [Concomitant]
  6. ENALAPRIL (ENALAPRIL MALEATE) [Concomitant]
  7. GLIPIZIDE ER (GLIPIZIDE) [Concomitant]
  8. HYDRALAZINE HCL (HYDRALAZINE HYDROCHLORIDE) [Concomitant]
  9. JANUVIA (SITAGLIPTIN PHOSPHATE) [Concomitant]
  10. LABETALOL HCL (LABETALOL HYDROCHLORIDE) [Concomitant]
  11. LACTULOSE (LACTULOSE) [Concomitant]
  12. LIPITOR (ATORVASTATIN CALCIUM) [Concomitant]
  13. MIRALAX [Concomitant]
  14. VITAMIN D3 (VITAMIN D3) [Concomitant]
  15. ZANTAC [Concomitant]
  16. BIDIL (HYDRALAZINE HYDROCHLORIDE, ISOSORBIDE DINITRATE) [Concomitant]
  17. FERROUS SULFATE (FERROUS SULFATE) [Concomitant]
  18. COLCRYS [Concomitant]

REACTIONS (4)
  - Cardio-respiratory arrest [None]
  - Nausea [None]
  - Infusion related reaction [None]
  - Chills [None]
